FAERS Safety Report 26022701 (Version 1)
Quarter: 2025Q4

REPORT INFORMATION
  Report Type: Spontaneous
  Country: EU (occurrence: EU)
  Receive Date: 20251110
  Receipt Date: 20251110
  Transmission Date: 20260118
  Serious: Yes (Life-Threatening, Hospitalization, Other)
  Sender: FRESENIUS KABI
  Company Number: None

PATIENT
  Age: 74 Year
  Sex: Female
  Weight: 77 kg

DRUGS (5)
  1. PROPOFOL [Suspect]
     Active Substance: PROPOFOL
     Indication: Colonoscopy
     Dosage: SIMULTANEOUSLY WITH SODIUM CHLORIDE BAXTER 0,9% ?FOA: EMULSION FOR INJECTION
     Dates: start: 20251018, end: 20251018
  2. SODIUM CHLORIDE 0.9% [Suspect]
     Active Substance: SODIUM CHLORIDE
     Indication: Product used for unknown indication
     Dosage: SIMULTANEOUSLY WITH PROPOFOL MCT/LCT FRESENIUS ?FOA: SOLUTION FOR INFUSION
     Dates: start: 20251018, end: 20251018
  3. CITALOPRAM [Concomitant]
     Active Substance: CITALOPRAM
     Indication: Product used for unknown indication
  4. CALTRATE [Concomitant]
     Active Substance: CALCIUM CARBONATE
     Indication: Product used for unknown indication
  5. CYCLO 3 FORT [Concomitant]
     Active Substance: ASCORBIC ACID\HESPERIDIN METHYLCHALCONE\RUSCUS ACULEATUS ROOT
     Indication: Product used for unknown indication

REACTIONS (5)
  - Renal failure [Recovering/Resolving]
  - Septic shock [Recovering/Resolving]
  - Pyrexia [Recovering/Resolving]
  - Oliguria [Recovering/Resolving]
  - Suspected product quality issue [Unknown]

NARRATIVE: CASE EVENT DATE: 20251018
